FAERS Safety Report 18438785 (Version 1)
Quarter: 2020Q4

REPORT INFORMATION
  Report Type: Spontaneous
  Country: US (occurrence: US)
  Receive Date: 20201029
  Receipt Date: 20201029
  Transmission Date: 20210114
  Serious: No
  Sender: FDA-Public Use
  Company Number: US-GW PHARMA-202010USGW03661

PATIENT

DRUGS (3)
  1. EPIDIOLEX [Suspect]
     Active Substance: CANNABIDIOL
     Dosage: 50 MILLIGRAM, BID
     Route: 048
     Dates: start: 20200715, end: 2020
  2. EPIDIOLEX [Suspect]
     Active Substance: CANNABIDIOL
     Indication: LENNOX-GASTAUT SYNDROME
     Dosage: 50 MILLIGRAM, QD
     Route: 048
     Dates: start: 20200708, end: 20200714
  3. EPIDIOLEX [Suspect]
     Active Substance: CANNABIDIOL
     Dosage: 50 MILLIGRAM, BID (TITRATION DOSE)
     Route: 048
     Dates: start: 2020

REACTIONS (1)
  - Diarrhoea [Unknown]

NARRATIVE: CASE EVENT DATE: 2020
